FAERS Safety Report 5701153-5 (Version None)
Quarter: 2008Q2

REPORT INFORMATION
  Report Type: 
  Country: None (occurrence: None)
  Receive Date: 20080407
  Receipt Date: 20080312
  Transmission Date: 20081010
  Serious: Yes (Congenital Anomaly)
  Sender: FDA-Public Use
  Company Number: WAES 0803USA02598

PATIENT

DRUGS (7)
  1. INDOCIN [Suspect]
     Indication: POLYHYDRAMNIOS
     Dosage: 50 MG/TID; 25 MG/QID
     Dates: start: 20070717, end: 20070720
  2. INDOCIN [Suspect]
     Indication: POLYHYDRAMNIOS
     Dosage: 50 MG/TID; 25 MG/QID
     Dates: start: 20070721, end: 20070728
  3. CLINORIL [Suspect]
     Indication: POLYHYDRAMNIOS
     Dates: start: 20070801, end: 20070804
  4. CLINORIL [Suspect]
     Indication: POLYHYDRAMNIOS
     Dates: start: 20070805
  5. SLOW-K [Concomitant]
  6. THERAPHY UNSPECIFIED [Concomitant]
  7. RITODRINE HYDROCHLORIDE [Concomitant]

REACTIONS (3)
  - CAESAREAN SECTION [None]
  - DRUG EXPOSURE DURING PREGNANCY [None]
  - DYSTROPHIA MYOTONICA [None]
